FAERS Safety Report 24159645 (Version 2)
Quarter: 2025Q1

REPORT INFORMATION
  Report Type: Report from Study
  Country: US (occurrence: US)
  Receive Date: 20240731
  Receipt Date: 20250205
  Transmission Date: 20250408
  Serious: No
  Sender: AURINIA PHARMACEUTICALS
  Company Number: US-AURINIA PHARMACEUTICALS INC.-AUR-006068

PATIENT
  Age: 50 Year
  Sex: Male

DRUGS (4)
  1. LUPKYNIS [Suspect]
     Active Substance: VOCLOSPORIN
     Indication: Lupus nephritis
     Dosage: 23.7 MILLIGRAM, BID
     Route: 048
     Dates: start: 20231117
  2. LUPKYNIS [Suspect]
     Active Substance: VOCLOSPORIN
     Route: 048
     Dates: start: 20231121, end: 20240625
  3. LUPKYNIS [Suspect]
     Active Substance: VOCLOSPORIN
     Route: 048
     Dates: start: 20231121, end: 20240610
  4. LUPKYNIS [Suspect]
     Active Substance: VOCLOSPORIN
     Dosage: 23.7 MILLIGRAM, BID
     Route: 048
     Dates: end: 202408

REACTIONS (4)
  - Flatulence [Not Recovered/Not Resolved]
  - Abdominal distension [Not Recovered/Not Resolved]
  - Diarrhoea [Not Recovered/Not Resolved]
  - Gastrointestinal microorganism overgrowth [Not Recovered/Not Resolved]

NARRATIVE: CASE EVENT DATE: 20240516
